FAERS Safety Report 7439091-2 (Version None)
Quarter: 2011Q2

REPORT INFORMATION
  Report Type: 
  Country: None (occurrence: None)
  Receive Date: 20110427
  Receipt Date: 20110421
  Transmission Date: 20111010
  Serious: Yes (Hospitalization)
  Sender: FDA-Public Use
  Company Number: US-CEPHALON-2011001927

PATIENT
  Sex: Male
  Weight: 105 kg

DRUGS (14)
  1. FLOMAX [Concomitant]
  2. ASPIRIN [Concomitant]
     Dates: start: 20101101
  3. GABAPENTIN [Concomitant]
  4. GLIPIZIDE [Concomitant]
  5. BENDAMUSTINE HCL [Suspect]
     Indication: MULTIPLE MYELOMA
     Route: 041
     Dates: start: 20101101
  6. INSULIN [Concomitant]
     Dates: start: 20101230
  7. SENOKOT [Concomitant]
  8. ACETAMINOPHEN AND HYDROCODONE BITARTRATE [Concomitant]
  9. COUMADIN [Concomitant]
     Dates: start: 20101201
  10. POTASSIUM CHLORIDE [Concomitant]
  11. MIDODRINE HYDROCHLORIDE [Concomitant]
  12. REVLIMID [Suspect]
     Indication: MULTIPLE MYELOMA
     Dates: start: 20101101
  13. DEXAMETHASONE [Suspect]
     Indication: MULTIPLE MYELOMA
     Dates: start: 20101101
  14. MECLIZINE [Concomitant]
     Dates: start: 20100902

REACTIONS (3)
  - RESPIRATORY DISTRESS [None]
  - PULMONARY OEDEMA [None]
  - CYTOMEGALOVIRUS INFECTION [None]
